FAERS Safety Report 13739836 (Version 4)
Quarter: 2017Q4

REPORT INFORMATION
  Report Type: Report from Study
  Country: CA (occurrence: CA)
  Receive Date: 20170711
  Receipt Date: 20171222
  Transmission Date: 20180320
  Serious: Yes (Hospitalization, Other)
  Sender: FDA-Public Use
  Company Number: CA-GLAXOSMITHKLINE-CA2017GSK105865

PATIENT
  Sex: Male

DRUGS (14)
  1. SULFAMETHOXAZOLE + TRIMETHOPRIM [Suspect]
     Active Substance: SULFAMETHOXAZOLE\TRIMETHOPRIM
     Indication: PRODUCT USED FOR UNKNOWN INDICATION
     Dosage: 1 DF, BID
     Dates: start: 20160505
  2. TUDORZA PRESSAIR [Suspect]
     Active Substance: ACLIDINIUM BROMIDE
     Indication: PRODUCT USED FOR UNKNOWN INDICATION
     Dosage: 1 PUFF(S), BID
     Dates: start: 20151104
  3. AMOXICILLIN AND CLAVULANATE POTASSIUM [Suspect]
     Active Substance: AMOXICILLIN\CLAVULANATE POTASSIUM
     Indication: PRODUCT USED FOR UNKNOWN INDICATION
     Dosage: UNK UNK, BID
     Dates: start: 20160104
  4. NUCALA [Suspect]
     Active Substance: MEPOLIZUMAB
     Dosage: 100 MG, Z, MONTHLY
     Route: 042
     Dates: start: 20170831
  5. SYMBICORT [Suspect]
     Active Substance: BUDESONIDE\FORMOTEROL FUMARATE DIHYDRATE
     Indication: PRODUCT USED FOR UNKNOWN INDICATION
     Dosage: 2 PUFF(S), BID
     Dates: start: 20161110
  6. SALBUTAMOL SULPHATE [Suspect]
     Active Substance: ALBUTEROL SULFATE
     Indication: PRODUCT USED FOR UNKNOWN INDICATION
     Dosage: 2 PUFF(S), Z
     Dates: start: 20150825
  7. AMOXICILLIN. [Suspect]
     Active Substance: AMOXICILLIN
     Indication: PRODUCT USED FOR UNKNOWN INDICATION
     Dosage: 2 DF, TID
     Dates: start: 20151104
  8. NUCALA [Suspect]
     Active Substance: MEPOLIZUMAB
     Indication: ASTHMA
     Dosage: 100 MG, Z, MONTHLY
     Route: 042
     Dates: start: 20170707
  9. SPIRIVA [Suspect]
     Active Substance: TIOTROPIUM BROMIDE MONOHYDRATE
     Indication: PRODUCT USED FOR UNKNOWN INDICATION
     Dosage: 1 DF, 1D, CAPSULE
     Dates: start: 20160921
  10. PREDNISONE. [Suspect]
     Active Substance: PREDNISONE
     Indication: PRODUCT USED FOR UNKNOWN INDICATION
     Dosage: UNK
     Route: 048
     Dates: start: 20160104
  11. BECLOMETHASONE DIPROPIONATE [Suspect]
     Active Substance: BECLOMETHASONE DIPROPIONATE
     Indication: PRODUCT USED FOR UNKNOWN INDICATION
     Dosage: 2 DF, 1D
     Dates: start: 20090821
  12. PANTOPRAZOLE [Suspect]
     Active Substance: PANTOPRAZOLE
     Indication: PRODUCT USED FOR UNKNOWN INDICATION
     Dosage: 1 DF, 1D
     Dates: start: 20160204
  13. NYSTATIN. [Suspect]
     Active Substance: NYSTATIN
     Indication: PRODUCT USED FOR UNKNOWN INDICATION
     Dosage: 10 ML, QID
     Dates: start: 20160505
  14. NUCALA [Suspect]
     Active Substance: MEPOLIZUMAB
     Dosage: 100 MG, Z, MONTHLY
     Route: 042

REACTIONS (22)
  - Mood swings [Unknown]
  - General physical health deterioration [Unknown]
  - Dyspnoea [Unknown]
  - Irritability [Unknown]
  - Depression [Unknown]
  - Asthenia [Unknown]
  - Fatigue [Unknown]
  - Quality of life decreased [Unknown]
  - Immune system disorder [Unknown]
  - Asthma [Unknown]
  - Therapeutic response decreased [Unknown]
  - Pulmonary congestion [Unknown]
  - Malaise [Unknown]
  - Psychiatric symptom [Unknown]
  - Decreased activity [Unknown]
  - Weight increased [Unknown]
  - Sleep disorder [Unknown]
  - Oral candidiasis [Unknown]
  - Productive cough [Unknown]
  - Oxygen saturation decreased [Unknown]
  - Cognitive disorder [Unknown]
  - Sinusitis [Recovered/Resolved]
